FAERS Safety Report 9096435 (Version 1)
Quarter: 2013Q1

REPORT INFORMATION
  Report Type: Spontaneous
  Country: GB (occurrence: None)
  Receive Date: 20130124
  Receipt Date: 20130124
  Transmission Date: 20140127
  Serious: Yes (Hospitalization)
  Sender: FDA-Public Use
  Company Number: 2013ST000011

PATIENT
  Age: 67 Year
  Sex: Male

DRUGS (1)
  1. OMEPRAZOLE (OMEPRAZOLE) [Suspect]
     Indication: GASTROOESOPHAGEAL REFLUX DISEASE
     Dates: end: 20120626

REACTIONS (15)
  - Hypomagnesaemia [None]
  - Hypocalcaemia [None]
  - Gastroenteritis [None]
  - Abdominal pain lower [None]
  - Diarrhoea [None]
  - Vomiting [None]
  - Muscular weakness [None]
  - Paraesthesia [None]
  - Muscle spasms [None]
  - Tetany [None]
  - Blood potassium decreased [None]
  - Convulsion [None]
  - Encephalopathy [None]
  - Hyperparathyroidism [None]
  - Dysgeusia [None]
